FAERS Safety Report 5528113-1 (Version None)
Quarter: 2007Q4

REPORT INFORMATION
  Report Type: 
  Country: None (occurrence: None)
  Receive Date: 20071123
  Receipt Date: 20071108
  Transmission Date: 20080405
  Serious: Yes (Disabling)
  Sender: FDA-Public Use
  Company Number: S06-FRA-04871-01

PATIENT
  Sex: Male
  Weight: 70 kg

DRUGS (2)
  1. CITALOPRAM HYDROBROMIDE [Suspect]
     Indication: DEPRESSION
     Dosage: 20 MG QD PO
     Route: 048
     Dates: end: 20061108
  2. TETRAZEPAM [Suspect]
     Indication: BACK PAIN
     Dates: start: 20061106, end: 20061108

REACTIONS (3)
  - ARTHRALGIA [None]
  - DRUG INTERACTION [None]
  - HEPATITIS [None]
